FAERS Safety Report 9804696 (Version 1)
Quarter: 2014Q1

REPORT INFORMATION
  Report Type: Spontaneous
  Country: FR (occurrence: FR)
  Receive Date: 20140108
  Receipt Date: 20140108
  Transmission Date: 20141002
  Serious: Yes (Other)
  Sender: FDA-Public Use
  Company Number: ALCN2013FR006421

PATIENT
  Age: 71 Year
  Sex: Female

DRUGS (2)
  1. ATROPINE SULFATE [Suspect]
     Indication: EYE OPERATION
     Dosage: UNK, ONCE/SINGLE
     Route: 047
     Dates: start: 20131209, end: 20131209
  2. ATROPINE SULFATE [Suspect]
     Indication: EYE OPERATION
     Dosage: UNK, ONCE/SINGLE
     Route: 042
     Dates: start: 20131209, end: 20131209

REACTIONS (3)
  - Sinus tachycardia [Recovered/Resolved]
  - Mydriasis [Recovered/Resolved]
  - Confusional state [Recovered/Resolved]
